FAERS Safety Report 7645983-1 (Version None)
Quarter: 2011Q3

REPORT INFORMATION
  Report Type: 
  Country: None (occurrence: None)
  Receive Date: 20110729
  Receipt Date: 20110720
  Transmission Date: 20111222
  Serious: Yes (Other)
  Sender: FDA-Public Use
  Company Number: JP-ASTRAZENECA-2010SE03405

PATIENT
  Age: 54 Year
  Sex: Male

DRUGS (5)
  1. FOSCAVIR [Suspect]
     Route: 041
     Dates: start: 20100119
  2. VALGANCICLOVIR [Concomitant]
  3. GANCICLOVIR [Concomitant]
     Route: 041
     Dates: start: 20090521, end: 20090609
  4. FOSCAVIR [Suspect]
     Indication: CYTOMEGALOVIRUS CHORIORETINITIS
     Route: 041
  5. FOSCAVIR [Suspect]
     Route: 041
     Dates: end: 20100222

REACTIONS (2)
  - RENAL IMPAIRMENT [None]
  - HYPOGLYCAEMIC SEIZURE [None]
